FAERS Safety Report 13142104 (Version 1)
Quarter: 2017Q1

REPORT INFORMATION
  Report Type: Spontaneous
  Country: US (occurrence: US)
  Receive Date: 20170124
  Receipt Date: 20170124
  Transmission Date: 20170428
  Serious: Yes (Hospitalization)
  Sender: FDA-Public Use
  Company Number: US-PFIZER INC-2017023916

PATIENT
  Age: 71 Year
  Sex: Female
  Weight: 87 kg

DRUGS (1)
  1. DEPO-MEDROL [Suspect]
     Active Substance: METHYLPREDNISOLONE ACETATE
     Indication: BACK PAIN
     Dosage: 80 MG; LIQUID, INJECTED INTO THE EPIDURAL SPACE
     Route: 008
     Dates: start: 201505

REACTIONS (5)
  - Loss of consciousness [Recovered/Resolved]
  - Confusional state [Recovered/Resolved]
  - Hypoaesthesia [Recovered/Resolved]
  - Product use issue [Recovered/Resolved]
  - Muscle disorder [Recovered/Resolved]

NARRATIVE: CASE EVENT DATE: 201505
